FAERS Safety Report 18662316 (Version 4)
Quarter: 2021Q2

REPORT INFORMATION
  Report Type: Spontaneous
  Country: IT (occurrence: IT)
  Receive Date: 20201224
  Receipt Date: 20210525
  Transmission Date: 20210717
  Serious: Yes (Life-Threatening, Other)
  Sender: FDA-Public Use
  Company Number: IT-ALLERGAN-2049701US

PATIENT
  Sex: Female

DRUGS (2)
  1. CEFTAZIDIME;AVIBACTAM ? BP [Suspect]
     Active Substance: AVIBACTAM SODIUM\CEFTAZIDIME
     Indication: SEPSIS
     Dosage: 2.5 G, 3X/DAY (EVERY 8 HOUR)
  2. FOSFOMYCIN [Suspect]
     Active Substance: FOSFOMYCIN
     Indication: SEPSIS
     Dosage: 4 G, 4X/DAY (EVERY 6 HOUR)

REACTIONS (2)
  - Mental impairment [Recovered/Resolved]
  - Partial seizures [Recovered/Resolved]
